FAERS Safety Report 15344702 (Version 1)
Quarter: 2018Q4

REPORT INFORMATION
  Report Type: Spontaneous
  Country: DE (occurrence: DE)
  Receive Date: 20180903
  Receipt Date: 20180903
  Transmission Date: 20190204
  Serious: Yes (Other)
  Sender: FDA-Public Use
  Company Number: DE-TEVA-2018-DE-950943

PATIENT
  Age: 65 Year
  Sex: Male
  Weight: 72 kg

DRUGS (6)
  1. VALSARTAN ABZ 160 MG FILMTABLETTEN [Suspect]
     Active Substance: VALSARTAN
     Dates: start: 20180424
  2. METOHEXAL SUCC 47,5 MG RETARDTABLETTEN [Concomitant]
     Indication: HYPERTENSION
     Dosage: 1.5 DOSAGE FORMS DAILY;
     Dates: start: 2011
  3. UROREC [Concomitant]
     Active Substance: SILODOSIN
     Dosage: 4 MILLIGRAM DAILY;
  4. CITALOPRAM [Concomitant]
     Active Substance: CITALOPRAM HYDROBROMIDE
     Dosage: 20 MILLIGRAM DAILY;
  5. VALSARTAN ABZ 160 MG FILMTABLETTEN [Suspect]
     Active Substance: VALSARTAN
     Indication: HYPERTENSION
     Dosage: 160 MILLIGRAM DAILY;
     Route: 065
     Dates: start: 201801, end: 201804
  6. SPIRONOLACTONE. [Concomitant]
     Active Substance: SPIRONOLACTONE
     Dosage: 25 MILLIGRAM DAILY;

REACTIONS (4)
  - Therapy non-responder [Unknown]
  - Circulatory collapse [Unknown]
  - Aortic aneurysm [Unknown]
  - Hypertension [Unknown]

NARRATIVE: CASE EVENT DATE: 201804
